FAERS Safety Report 7198057-0 (Version None)
Quarter: 2010Q4

REPORT INFORMATION
  Report Type: 
  Country: None (occurrence: None)
  Receive Date: 20101227
  Receipt Date: 20101221
  Transmission Date: 20110411
  Serious: Yes (Death)
  Sender: FDA-Public Use
  Company Number: US-ROCHE-749946

PATIENT
  Sex: Male
  Weight: 79.4 kg

DRUGS (1)
  1. PEGINTERFERON ALFA-2A [Suspect]
     Dosage: LAST DOSE PRIOR TO SAE: 28MAY 2010. ROUTE TAKEN FROM PROTOCOL
     Route: 058
     Dates: start: 20100717

REACTIONS (1)
  - DEATH [None]
